FAERS Safety Report 16094950 (Version 1)
Quarter: 2019Q2

REPORT INFORMATION
  Report Type: Spontaneous
  Country: US (occurrence: US)
  Receive Date: 20190320
  Receipt Date: 20190320
  Transmission Date: 20190711
  Serious: Yes (Hospitalization)
  Sender: FDA-Public Use
  Company Number: None

PATIENT
  Sex: Male

DRUGS (9)
  1. JUICE/FIBRE [Concomitant]
  2. CELEXA [Concomitant]
     Active Substance: CITALOPRAM HYDROBROMIDE
  3. ASPIRIN. [Concomitant]
     Active Substance: ASPIRIN
  4. GLEOSTINE [Suspect]
     Active Substance: LOMUSTINE
     Indication: NEOPLASM MALIGNANT
     Route: 048
     Dates: start: 20170210
  5. LEVETIRACETA [Concomitant]
  6. FISH OIL [Concomitant]
     Active Substance: FISH OIL
  7. L-THYROXINE [Concomitant]
     Active Substance: LEVOTHYROXINE
  8. SIMVASTATIN. [Concomitant]
     Active Substance: SIMVASTATIN
  9. VITAMIN D3 [Concomitant]
     Active Substance: CHOLECALCIFEROL

REACTIONS (1)
  - Hospitalisation [None]
